FAERS Safety Report 4982262-5 (Version None)
Quarter: 2006Q2

REPORT INFORMATION
  Report Type: 
  Country: None (occurrence: None)
  Receive Date: 20060424
  Receipt Date: 20060424
  Transmission Date: 20061013
  Serious: Yes (Other)
  Sender: FDA-Public Use
  Company Number: None

PATIENT
  Age: 25 Year
  Sex: Female
  Weight: 53.5244 kg

DRUGS (2)
  1. AMBIEN [Suspect]
     Indication: INITIAL INSOMNIA
     Dates: start: 19990601, end: 19990601
  2. AMBIEN [Suspect]
     Indication: INITIAL INSOMNIA
     Dates: start: 20020201, end: 20020201

REACTIONS (7)
  - ABNORMAL BEHAVIOUR [None]
  - ABNORMAL SLEEP-RELATED EVENT [None]
  - ALCOHOL USE [None]
  - AMNESIA [None]
  - HALLUCINATION [None]
  - HALLUCINATION, VISUAL [None]
  - VOMITING [None]
